FAERS Safety Report 6968494-5 (Version None)
Quarter: 2010Q3

REPORT INFORMATION
  Report Type: 
  Country: None (occurrence: None)
  Receive Date: 20100907
  Receipt Date: 20100830
  Transmission Date: 20110219
  Serious: Yes (Other)
  Sender: FDA-Public Use
  Company Number: US-ROCHE-724563

PATIENT
  Sex: Male

DRUGS (2)
  1. CAPECITABINE [Suspect]
     Indication: COLORECTAL CANCER
     Route: 048
     Dates: start: 20100630, end: 20100825
  2. CAPECITABINE [Suspect]
     Route: 048
     Dates: start: 20100826

REACTIONS (4)
  - MUSCULOSKELETAL PAIN [None]
  - NERVE INJURY [None]
  - PALMAR ERYTHEMA [None]
  - SKIN DISCOLOURATION [None]
